FAERS Safety Report 24015112 (Version 1)
Quarter: 2024Q2

REPORT INFORMATION
  Report Type: Spontaneous
  Country: US (occurrence: None)
  Receive Date: 20240626
  Receipt Date: 20240626
  Transmission Date: 20240716
  Serious: Yes (Hospitalization)
  Sender: FDA-Public Use
  Company Number: None

PATIENT
  Age: 63 Year
  Sex: Male
  Weight: 115 kg

DRUGS (1)
  1. DULOXETINE HYDROCHLORIDE [Suspect]
     Active Substance: DULOXETINE HYDROCHLORIDE
     Dates: end: 20240618

REACTIONS (10)
  - Catheter site infection [None]
  - Blood culture positive [None]
  - Staphylococcal sepsis [None]
  - Asthenia [None]
  - Syncope [None]
  - Chills [None]
  - Dyspnoea [None]
  - Fatigue [None]
  - Atrial fibrillation [None]
  - Ventricular tachycardia [None]

NARRATIVE: CASE EVENT DATE: 20240619
